FAERS Safety Report 23152216 (Version 2)
Quarter: 2023Q4

REPORT INFORMATION
  Report Type: Spontaneous
  Country: US (occurrence: US)
  Receive Date: 20231107
  Receipt Date: 20231117
  Transmission Date: 20240110
  Serious: Yes (Other)
  Sender: FDA-Public Use
  Company Number: US-ESPERIONTHERAPEUTICS-2023USA01216

PATIENT
  Age: 71 Year
  Sex: Male

DRUGS (2)
  1. NEXLETOL [Suspect]
     Active Substance: BEMPEDOIC ACID
     Indication: Product used for unknown indication
     Dosage: UNK
     Route: 065
     Dates: start: 202310
  2. PRAVASTATIN [Concomitant]
     Active Substance: PRAVASTATIN
     Indication: Type IIa hyperlipidaemia
     Dosage: UNK
     Route: 065

REACTIONS (3)
  - Arteriosclerosis coronary artery [Unknown]
  - Arthralgia [Unknown]
  - Diarrhoea [Unknown]
